FAERS Safety Report 10466523 (Version 1)
Quarter: 2014Q3

REPORT INFORMATION
  Report Type: Spontaneous
  Country: US (occurrence: None)
  Receive Date: 20140919
  Receipt Date: 20140919
  Transmission Date: 20150326
  Serious: No
  Sender: FDA-Public Use
  Company Number: None

PATIENT
  Age: 25 Year
  Sex: Female
  Weight: 51.71 kg

DRUGS (1)
  1. PRISTIQ EXTENDED RELEASE [Suspect]
     Active Substance: DESVENLAFAXINE SUCCINATE
     Indication: STRESS
     Dosage: 1 TABLET, ONCE DAILY, TAKEN BY MOUTH
     Route: 048
     Dates: start: 20131101, end: 20140918

REACTIONS (9)
  - Emotional disorder [None]
  - Drug withdrawal syndrome [None]
  - Drug dose omission [None]
  - Night sweats [None]
  - Dizziness [None]
  - Activities of daily living impaired [None]
  - Impaired work ability [None]
  - Disorientation [None]
  - Anxiety [None]
